FAERS Safety Report 18592677 (Version 5)
Quarter: 2021Q3

REPORT INFORMATION
  Report Type: Report from Study
  Country: NO (occurrence: NO)
  Receive Date: 20201208
  Receipt Date: 20210927
  Transmission Date: 20211014
  Serious: Yes (Hospitalization)
  Sender: FDA-Public Use
  Company Number: NVSC2020NO319210

PATIENT
  Age: 72 Year
  Sex: Male
  Weight: 77 kg

DRUGS (12)
  1. TAFINLAR [Suspect]
     Active Substance: DABRAFENIB MESYLATE
     Dosage: 75 MG
     Route: 048
     Dates: start: 20201128, end: 20210721
  2. TAFINLAR [Suspect]
     Active Substance: DABRAFENIB MESYLATE
     Dosage: 75 MG
     Route: 065
     Dates: start: 20210729
  3. RAMIPRIL. [Concomitant]
     Active Substance: RAMIPRIL
     Indication: HYPERTENSION
     Dosage: 10 MG, QD
     Route: 065
     Dates: start: 201512
  4. RITUXIMAB. [Concomitant]
     Active Substance: RITUXIMAB
     Indication: RHEUMATOID ARTHRITIS
     Dosage: UNK (EVERY 6TH MONTH) (LAST DOSE WAS GIVEN IN OTHER HOSPITAL BEFOR IN 27 FEB 2019 AND 22 JAN 2020) T
     Route: 042
     Dates: start: 2015
  5. MEKINIST [Suspect]
     Active Substance: TRAMETINIB DIMETHYL SULFOXIDE
     Indication: MALIGNANT MELANOMA
     Dosage: 2 MG
     Route: 048
     Dates: start: 20191016, end: 20201127
  6. TAFINLAR [Suspect]
     Active Substance: DABRAFENIB MESYLATE
     Indication: MALIGNANT MELANOMA
     Dosage: 150 MG
     Route: 048
     Dates: start: 20191016, end: 20201127
  7. BACTRIM [Concomitant]
     Active Substance: SULFAMETHOXAZOLE\TRIMETHOPRIM
     Indication: PNEUMONIA
     Dosage: 2 DF, BID (2 TABLET SATURDAY AND SUNDAY)
     Route: 065
     Dates: start: 20200430
  8. MEKINIST [Suspect]
     Active Substance: TRAMETINIB DIMETHYL SULFOXIDE
     Dosage: 1 MG
     Route: 048
     Dates: start: 20201128, end: 20210721
  9. MEKINIST [Suspect]
     Active Substance: TRAMETINIB DIMETHYL SULFOXIDE
     Dosage: 1 MG
     Route: 048
     Dates: start: 20210729
  10. DIPRASORIN [Concomitant]
     Indication: PRODUCT USED FOR UNKNOWN INDICATION
     Dosage: 25 MG, BID
     Route: 065
     Dates: start: 20201030
  11. CLEXANE [Concomitant]
     Active Substance: ENOXAPARIN SODIUM
     Indication: PULMONARY EMBOLISM
     Dosage: 60 MG, BID (60 MG X2)
     Route: 058
     Dates: start: 20200107, end: 20200402
  12. CRESTOR [Concomitant]
     Active Substance: ROSUVASTATIN CALCIUM
     Indication: PRODUCT USED FOR UNKNOWN INDICATION
     Dosage: 10 MG, QD
     Route: 065
     Dates: start: 20201031

REACTIONS (13)
  - Hypercholesterolaemia [Not Recovered/Not Resolved]
  - Haematoma [Unknown]
  - Haemoglobin decreased [Unknown]
  - Epilepsy [Recovered/Resolved]
  - Chest injury [Recovered/Resolved]
  - Pain [Recovered/Resolved]
  - Fall [Recovered/Resolved]
  - C-reactive protein increased [Unknown]
  - Pyrexia [Recovered/Resolved]
  - Epilepsy [Recovered/Resolved]
  - Injury [Unknown]
  - Contusion [Unknown]
  - Fibrin D dimer increased [Unknown]

NARRATIVE: CASE EVENT DATE: 20200401
